FAERS Safety Report 7490343-X (Version None)
Quarter: 2011Q2

REPORT INFORMATION
  Report Type: 
  Country: None (occurrence: None)
  Receive Date: 20110517
  Receipt Date: 20110517
  Transmission Date: 20111010
  Serious: Yes (Life-Threatening, Hospitalization)
  Sender: FDA-Public Use
  Company Number: None

PATIENT
  Age: 64 Year
  Sex: Male
  Weight: 74.4 kg

DRUGS (3)
  1. OLANZAPINE [Suspect]
     Indication: BIPOLAR I DISORDER
     Dosage: 15 MG AT BEDTIME PO; 30 MG AT BEDTIME PO
     Route: 048
     Dates: start: 20101122, end: 20110512
  2. OLANZAPINE [Suspect]
     Indication: BIPOLAR I DISORDER
     Dosage: 15 MG AT BEDTIME PO; 30 MG AT BEDTIME PO
     Route: 048
     Dates: start: 20100506, end: 20100511
  3. OLANZAPINE [Suspect]

REACTIONS (15)
  - DYSPHAGIA [None]
  - BLOOD UREA INCREASED [None]
  - COUGH [None]
  - HYPERTENSION [None]
  - PYREXIA [None]
  - BLOOD CREATININE INCREASED [None]
  - LEUKOCYTOSIS [None]
  - TREMOR [None]
  - DISORIENTATION [None]
  - CONFUSIONAL STATE [None]
  - FALL [None]
  - ASTHENIA [None]
  - NEUROLEPTIC MALIGNANT SYNDROME [None]
  - RHABDOMYOLYSIS [None]
  - TACHYCARDIA [None]
